FAERS Safety Report 24106051 (Version 1)
Quarter: 2024Q3

REPORT INFORMATION
  Report Type: Spontaneous
  Country: US (occurrence: US)
  Receive Date: 20240717
  Receipt Date: 20240717
  Transmission Date: 20241017
  Serious: Yes (Other)
  Sender: PFIZER
  Company Number: US-PFIZER INC-202400213995

PATIENT
  Age: 61 Year
  Sex: Female

DRUGS (2)
  1. XELJANZ XR [Suspect]
     Active Substance: TOFACITINIB CITRATE
     Indication: Rheumatoid arthritis
     Dosage: TAKE 1 TABLET(S) EVERY DAY BY ORAL ROUTE FOR 30 DAYS
     Route: 048
  2. XELJANZ XR [Suspect]
     Active Substance: TOFACITINIB CITRATE
     Indication: Axial spondyloarthritis

REACTIONS (8)
  - Juvenile idiopathic arthritis [Unknown]
  - Sjogren^s syndrome [Unknown]
  - Myalgia [Unknown]
  - Muscular weakness [Unknown]
  - Dactylitis [Unknown]
  - Back pain [Unknown]
  - Chest pain [Unknown]
  - Intentional product misuse [Unknown]
